FAERS Safety Report 9260132 (Version 1)
Quarter: 2013Q2

REPORT INFORMATION
  Report Type: Spontaneous
  Country: US (occurrence: US)
  Receive Date: 20130429
  Receipt Date: 20130429
  Transmission Date: 20140414
  Serious: Yes (Other)
  Sender: FDA-Public Use
  Company Number: US-BAYER-2013-051757

PATIENT
  Age: 32 Year
  Sex: Female

DRUGS (13)
  1. YAZ [Suspect]
  2. CIPROFLOXACIN [Concomitant]
     Dosage: 500 MG, UNK
     Route: 048
     Dates: start: 20070102
  3. CYTOMEL [Concomitant]
     Dosage: 25 MG, UNK
     Route: 048
     Dates: start: 20070106
  4. PHENTERMINE [Concomitant]
     Dosage: 37.5 MG, UNK
     Route: 048
     Dates: start: 20070106
  5. DIETHYLPROPION [Concomitant]
     Dosage: 25 MG, UNK
     Route: 048
     Dates: start: 20070106
  6. DIAZEPAM [Concomitant]
     Dosage: 5 MG, UNK
     Route: 048
     Dates: start: 20070201
  7. CEPHALEXIN [Concomitant]
     Dosage: 500 MG, UNK
     Route: 048
     Dates: start: 20070202
  8. HYDROCODONE W/APAP [Concomitant]
     Dosage: 7.5 /500 MG
     Route: 048
     Dates: start: 20070202
  9. LISINOPRIL [Concomitant]
     Dosage: 20 MG, UNK
     Route: 048
     Dates: start: 20070226
  10. NITROFURANTOIN [Concomitant]
     Dosage: 100 MG, UNK
     Route: 048
     Dates: start: 20070404
  11. LORAZEPAM [Concomitant]
  12. DILAUDID [Concomitant]
  13. ZOFRAN [Concomitant]

REACTIONS (2)
  - Deep vein thrombosis [None]
  - Pulmonary embolism [Recovered/Resolved]
